FAERS Safety Report 8966721 (Version 5)
Quarter: 2013Q1

REPORT INFORMATION
  Report Type: Spontaneous
  Country: DE (occurrence: DE)
  Receive Date: 20121217
  Receipt Date: 20130117
  Transmission Date: 20140127
  Serious: Yes (Life-Threatening, Hospitalization)
  Sender: FDA-Public Use
  Company Number: DE-JNJFOC-20121206314

PATIENT
  Age: 79 Year
  Sex: Male
  Weight: 112.2 kg

DRUGS (12)
  1. XARELTO [Suspect]
     Indication: CEREBROVASCULAR ACCIDENT PROPHYLAXIS
     Route: 048
  2. XARELTO [Suspect]
     Indication: CEREBROVASCULAR ACCIDENT PROPHYLAXIS
     Route: 048
     Dates: start: 20120222, end: 20120719
  3. XARELTO [Suspect]
     Indication: CEREBROVASCULAR ACCIDENT PROPHYLAXIS
     Route: 048
  4. XARELTO [Suspect]
     Indication: ATRIAL FIBRILLATION
     Route: 048
     Dates: start: 20120222, end: 20120719
  5. XARELTO [Suspect]
     Indication: ATRIAL FIBRILLATION
     Route: 048
  6. XARELTO [Suspect]
     Indication: ATRIAL FIBRILLATION
     Route: 048
  7. XARELTO [Suspect]
     Indication: EMBOLISM VENOUS
     Route: 048
  8. XARELTO [Suspect]
     Indication: EMBOLISM VENOUS
     Route: 048
     Dates: start: 20120222, end: 20120719
  9. XARELTO [Suspect]
     Indication: EMBOLISM VENOUS
     Route: 048
  10. XARELTO [Suspect]
     Indication: THROMBOSIS
     Route: 048
  11. XARELTO [Suspect]
     Indication: THROMBOSIS
     Route: 048
     Dates: start: 20120222, end: 20120719
  12. XARELTO [Suspect]
     Indication: THROMBOSIS
     Route: 048

REACTIONS (3)
  - Cerebrovascular accident [Unknown]
  - Device occlusion [Recovered/Resolved]
  - Haematoma [Unknown]
